FAERS Safety Report 9397041 (Version 2)
Quarter: 2013Q3

REPORT INFORMATION
  Report Type: Spontaneous
  Country: US (occurrence: US)
  Receive Date: 20130712
  Receipt Date: 20130719
  Transmission Date: 20140515
  Serious: Yes (Other)
  Sender: FDA-Public Use
  Company Number: US-PFIZER INC-2013203252

PATIENT
  Age: 62 Year
  Sex: Female
  Weight: 62.13 kg

DRUGS (4)
  1. LYRICA [Suspect]
     Indication: PAIN IN EXTREMITY
     Dosage: 50 MG, 2X/DAY
     Route: 048
     Dates: start: 2013, end: 2013
  2. LYRICA [Suspect]
     Dosage: 100 MG, 2X/DAY
     Route: 048
     Dates: start: 2013, end: 20130709
  3. OMEPRAZOLE [Suspect]
     Dosage: 40 MG, 1X/DAY
  4. KLONOPIN [Concomitant]
     Indication: ANXIETY
     Dosage: UNK

REACTIONS (9)
  - Drug dose omission [Unknown]
  - Gait disturbance [Unknown]
  - Anxiety [Unknown]
  - Speech disorder [Unknown]
  - Drug screen positive [Unknown]
  - Hyperhidrosis [Unknown]
  - Pain [Unknown]
  - Malaise [Unknown]
  - Dysphonia [Unknown]
